FAERS Safety Report 18935890 (Version 2)
Quarter: 2021Q1

REPORT INFORMATION
  Report Type: Spontaneous
  Country: US (occurrence: US)
  Receive Date: 20210225
  Receipt Date: 20210308
  Transmission Date: 20210420
  Serious: Yes (Hospitalization, Other)
  Sender: FDA-Public Use
  Company Number: US-CIPLA LTD.-2021US01256

PATIENT

DRUGS (1)
  1. CARBOPLATIN. [Suspect]
     Active Substance: CARBOPLATIN
     Indication: GLIOMA
     Dosage: 500 MILLIGRAM/SQ. METER, 8 (CYCLICAL), MONTHLY HIGH DOSE
     Route: 065

REACTIONS (7)
  - Vomiting [Recovering/Resolving]
  - Nausea [Recovering/Resolving]
  - Hydronephrosis [Recovering/Resolving]
  - Dehydration [Unknown]
  - Haemorrhage urinary tract [Recovering/Resolving]
  - Toxicity to various agents [Recovering/Resolving]
  - Haematuria [Recovered/Resolved]
